FAERS Safety Report 10677933 (Version 5)
Quarter: 2015Q3

REPORT INFORMATION
  Report Type: Report from Study
  Country: US (occurrence: US)
  Receive Date: 20141229
  Receipt Date: 20150708
  Transmission Date: 20151125
  Serious: Yes (Hospitalization, Other)
  Sender: FDA-Public Use
  Company Number: US-BIOGENIDEC-2014BI133936

PATIENT
  Age: 64 Year
  Sex: Female

DRUGS (1)
  1. TYSABRI [Suspect]
     Active Substance: NATALIZUMAB
     Indication: MULTIPLE SCLEROSIS
     Route: 042
     Dates: start: 20070719

REACTIONS (3)
  - Colon adenoma [Unknown]
  - Gastrointestinal haemorrhage [Not Recovered/Not Resolved]
  - Adenocarcinoma of colon [Unknown]

NARRATIVE: CASE EVENT DATE: 2009
